FAERS Safety Report 6332380-4 (Version None)
Quarter: 2009Q3

REPORT INFORMATION
  Report Type: 
  Country: None (occurrence: None)
  Receive Date: 20090828
  Receipt Date: 20090826
  Transmission Date: 20100115
  Serious: Yes (Other)
  Sender: FDA-Public Use
  Company Number: AU-BRISTOL-MYERS SQUIBB COMPANY-14756209

PATIENT
  Age: 50 Year
  Sex: Male

DRUGS (4)
  1. PRAVACHOL [Suspect]
  2. CADUET [Suspect]
     Indication: HYPERTENSION
     Dosage: 1 DOSAGEFORM = 5/20 MG
  3. CADUET [Suspect]
     Indication: HYPERCHOLESTEROLAEMIA
     Dosage: 1 DOSAGEFORM = 5/20 MG
  4. ZOLOFT [Concomitant]

REACTIONS (3)
  - HYPERTENSION [None]
  - MALAISE [None]
  - VITH NERVE PARALYSIS [None]
